FAERS Safety Report 12530460 (Version 1)
Quarter: 2016Q3

REPORT INFORMATION
  Report Type: Spontaneous
  Country: US (occurrence: None)
  Receive Date: 20160705
  Receipt Date: 20160705
  Transmission Date: 20161109
  Serious: Yes (Life-Threatening, Hospitalization, Disabling, Other)
  Sender: FDA-Public Use
  Company Number: None

PATIENT
  Age: 44 Year
  Sex: Female
  Weight: 90.72 kg

DRUGS (11)
  1. EYE DROPS [Concomitant]
     Active Substance: TETRAHYDROZOLINE HYDROCHLORIDE
  2. VYVANSE [Concomitant]
     Active Substance: LISDEXAMFETAMINE DIMESYLATE
  3. ESTROGEN [Concomitant]
     Active Substance: ESTRONE\SUS SCROFA OVARY
  4. B12 VITAMIN [Concomitant]
  5. BIOTIN [Concomitant]
     Active Substance: BIOTIN
  6. ONE-A-DAY NOS [Concomitant]
     Active Substance: MINERALS\VITAMINS
  7. LORAZEPAM. [Concomitant]
     Active Substance: LORAZEPAM
  8. SYSTANE (HYPROMELLOSE 2910 (4000 MPA.S)) [Concomitant]
     Active Substance: HYPROMELLOSE 2910 (4000 MPA.S)
  9. CHOLESTEROL [Concomitant]
     Active Substance: CHOLESTEROL
  10. ASA81 [Concomitant]
  11. NEOMYCIN [Suspect]
     Active Substance: NEOMYCIN
     Indication: EYE INFECTION
     Route: 031

REACTIONS (18)
  - Lip swelling [None]
  - Balance disorder [None]
  - Paraesthesia [None]
  - Eye pain [None]
  - Scratch [None]
  - Swelling face [None]
  - Skin burning sensation [None]
  - Dry eye [None]
  - Dyspnoea [None]
  - Ocular hyperaemia [None]
  - Eye swelling [None]
  - Mouth swelling [None]
  - Pharyngeal oedema [None]
  - Eye abscess [None]
  - Visual impairment [None]
  - Ageusia [None]
  - Hypoacusis [None]
  - Fall [None]

NARRATIVE: CASE EVENT DATE: 20120613
